FAERS Safety Report 9316188 (Version 1)
Quarter: 2013Q2

REPORT INFORMATION
  Report Type: Spontaneous
  Country: BR (occurrence: BR)
  Receive Date: 20130530
  Receipt Date: 20130530
  Transmission Date: 20140414
  Serious: Yes (Hospitalization, Other)
  Sender: FDA-Public Use
  Company Number: PHHY2013BR054253

PATIENT
  Age: 39 Year
  Sex: Female

DRUGS (1)
  1. TRILEPTAL [Suspect]
     Dosage: 300 UKN, BID
     Dates: start: 20070327

REACTIONS (2)
  - Status epilepticus [Unknown]
  - Gastroenteritis [Unknown]
